FAERS Safety Report 23700288 (Version 1)
Quarter: 2024Q2

REPORT INFORMATION
  Report Type: Spontaneous
  Country: AU (occurrence: AU)
  Receive Date: 20240403
  Receipt Date: 20240403
  Transmission Date: 20240716
  Serious: Yes (Other)
  Sender: FDA-Public Use
  Company Number: AU-JNJFOC-20240376214

PATIENT
  Age: 77 Year
  Sex: Male
  Weight: 85 kg

DRUGS (7)
  1. IMBRUVICA [Suspect]
     Active Substance: IBRUTINIB
     Indication: Mantle cell lymphoma recurrent
     Route: 048
     Dates: start: 202106, end: 202203
  2. IMBRUVICA [Suspect]
     Active Substance: IBRUTINIB
     Indication: Mantle cell lymphoma recurrent
     Route: 048
     Dates: start: 202203, end: 202211
  3. RITUXIMAB [Suspect]
     Active Substance: RITUXIMAB
     Indication: Mantle cell lymphoma recurrent
     Dosage: 3 CYCLES
     Route: 065
     Dates: start: 202103, end: 202106
  4. FILGRASTIM [Concomitant]
     Active Substance: FILGRASTIM
     Indication: Product used for unknown indication
  5. SULFAMETHOXAZOLE\TRIMETHOPRIM [Concomitant]
     Active Substance: SULFAMETHOXAZOLE\TRIMETHOPRIM
     Indication: Product used for unknown indication
  6. RIBOMUSTIN [Suspect]
     Active Substance: BENDAMUSTINE HYDROCHLORIDE
     Indication: Mantle cell lymphoma recurrent
     Dosage: 3 CYCLES
     Route: 042
     Dates: start: 202103, end: 202106
  7. VENETOCLAX [Suspect]
     Active Substance: VENETOCLAX
     Indication: Mantle cell lymphoma recurrent
     Route: 065
     Dates: start: 202203, end: 202211

REACTIONS (4)
  - Anisocytosis [Unknown]
  - Splenomegaly [Unknown]
  - Prostatomegaly [Unknown]
  - Ill-defined disorder [Unknown]
